FAERS Safety Report 8599952-8 (Version None)
Quarter: 2012Q3

REPORT INFORMATION
  Report Type: 
  Country: None (occurrence: None)
  Receive Date: 20120816
  Receipt Date: 20120806
  Transmission Date: 20120928
  Serious: Yes (Hospitalization, Other)
  Sender: FDA-Public Use
  Company Number: JP-ALLERGAN-1210164US

PATIENT
  Age: 76 Year
  Sex: Female

DRUGS (4)
  1. MYONAL [Concomitant]
     Indication: HYPOTONIA
     Dosage: 50 MG, BID
     Route: 048
     Dates: start: 20110501
  2. BOTOX [Suspect]
     Indication: MULTIPLE SYSTEM ATROPHY
     Dosage: 250 UNITS, SINGLE
     Route: 030
     Dates: start: 20120530, end: 20120530
  3. FAMOTIDINE [Concomitant]
     Dosage: 20 MG, QD
     Route: 048
     Dates: start: 20110201
  4. AKINETON [Concomitant]
     Indication: PARKINSONISM
     Dosage: 1 MG, TID
     Route: 048
     Dates: start: 20101201

REACTIONS (5)
  - OXYGEN SATURATION DECREASED [None]
  - BACK PAIN [None]
  - OLIGURIA [None]
  - PLEURAL EFFUSION [None]
  - PYREXIA [None]
